FAERS Safety Report 5358793-5 (Version None)
Quarter: 2007Q2

REPORT INFORMATION
  Report Type: 
  Country: None (occurrence: None)
  Receive Date: 20070615
  Receipt Date: 20070605
  Transmission Date: 20071010
  Serious: Yes (Hospitalization)
  Sender: FDA-Public Use
  Company Number: BE-AMGEN-US229274

PATIENT
  Age: 77 Year
  Sex: Female

DRUGS (7)
  1. ENBREL [Suspect]
     Indication: RHEUMATOID ARTHRITIS
     Route: 058
     Dates: start: 20031002, end: 20031112
  2. ENBREL [Suspect]
     Route: 058
     Dates: start: 20031113, end: 20050119
  3. ENBREL [Suspect]
     Route: 058
     Dates: start: 20050301, end: 20050922
  4. ENBREL [Suspect]
     Route: 058
     Dates: start: 20051006, end: 20051208
  5. ENBREL [Suspect]
     Route: 058
     Dates: start: 20051228, end: 20070122
  6. ENBREL [Suspect]
     Route: 058
     Dates: start: 20070212, end: 20070508
  7. LEDERTREXATE [Suspect]
     Indication: RHEUMATOID ARTHRITIS
     Route: 048
     Dates: start: 19980525, end: 20070416

REACTIONS (2)
  - LUNG DISORDER [None]
  - PNEUMONIA [None]
